FAERS Safety Report 18152460 (Version 2)
Quarter: 2020Q3

REPORT INFORMATION
  Report Type: Spontaneous
  Country: US (occurrence: US)
  Receive Date: 20200814
  Receipt Date: 20200925
  Transmission Date: 20201103
  Serious: Yes (Other)
  Sender: FDA-Public Use
  Company Number: US-LA JOLLA PHARMACEUTICAL COMPANY-0000365

PATIENT
  Age: 70 Year
  Sex: Male

DRUGS (5)
  1. EPINEPHRINE. [Concomitant]
     Active Substance: EPINEPHRINE
     Dosage: 2 MCG/MIN
  2. GIAPREZA [Suspect]
     Active Substance: ANGIOTENSIN II
     Indication: SHOCK
     Dosage: 15 NG/KG/MIN
  3. ARGININE VASOPRESSIN [Concomitant]
     Dosage: 0.06 UNITS/MIN
  4. NOREPINEPHRINE. [Concomitant]
     Active Substance: NOREPINEPHRINE
     Dosage: 0.625 ?G/KG/MIN
  5. FLUDROCORTISONE [Concomitant]
     Active Substance: FLUDROCORTISONE

REACTIONS (3)
  - Intestinal ischaemia [Unknown]
  - Mental status changes [Recovered/Resolved]
  - Cardiac tamponade [Unknown]
